FAERS Safety Report 4356743-1 (Version None)
Quarter: 2004Q2

REPORT INFORMATION
  Report Type: 
  Country: None (occurrence: None)
  Receive Date: 20040506
  Receipt Date: 20040420
  Transmission Date: 20050107
  Serious: No
  Sender: FDA-Public Use
  Company Number: 2004AP01353

PATIENT
  Age: 63 Year
  Sex: Female

DRUGS (8)
  1. IRESSA [Suspect]
     Indication: NON-SMALL CELL LUNG CANCER
     Dosage: 250 MG DAILY PO
     Route: 048
     Dates: start: 20031117, end: 20031218
  2. IRESSA [Suspect]
     Indication: NON-SMALL CELL LUNG CANCER
     Dosage: 250 MG QOD PO
     Route: 048
     Dates: start: 20031219
  3. LOXONIN [Concomitant]
  4. SELBEX [Concomitant]
  5. GASTER [Concomitant]
  6. OMEPRAZOLE [Concomitant]
  7. CISPLATIN [Concomitant]
  8. GEMCITABINE [Concomitant]

REACTIONS (4)
  - ALANINE AMINOTRANSFERASE INCREASED [None]
  - ASPARTATE AMINOTRANSFERASE INCREASED [None]
  - CONDITION AGGRAVATED [None]
  - LIVER DISORDER [None]
